FAERS Safety Report 4502349-0 (Version None)
Quarter: 2004Q4

REPORT INFORMATION
  Report Type: 
  Country: None (occurrence: None)
  Receive Date: 20041110
  Receipt Date: 20041027
  Transmission Date: 20050328
  Serious: Yes (Hospitalization)
  Sender: FDA-Public Use
  Company Number: ST-2004-008126

PATIENT
  Age: 79 Year
  Sex: Female
  Weight: 40 kg

DRUGS (6)
  1. OLMETEC [Suspect]
     Indication: HYPERTENSION
     Dosage: 20 MG DAILY PO
     Route: 048
     Dates: start: 20040601
  2. LIVALO [Suspect]
     Dosage: 2 MG QD PO
     Route: 048
     Dates: start: 20040601, end: 20040721
  3. CALBLOCK [Suspect]
     Dosage: 8 MG DAILY PO
     Route: 048
     Dates: start: 20040227
  4. ACINON [Concomitant]
  5. DORAL [Concomitant]
  6. SIGMART [Concomitant]

REACTIONS (1)
  - ANGINA PECTORIS [None]
